FAERS Safety Report 4716672-8 (Version None)
Quarter: 2005Q3

REPORT INFORMATION
  Report Type: 
  Country: None (occurrence: None)
  Receive Date: 20050714
  Receipt Date: 20050701
  Transmission Date: 20060218
  Serious: Yes (Hospitalization)
  Sender: FDA-Public Use
  Company Number: HQWYE958601JUL05

PATIENT
  Age: 48 Year
  Sex: Male

DRUGS (4)
  1. ETODOLAC [Suspect]
     Indication: PAIN
     Dosage: 400 MG 1X PER 1 DAY
     Dates: start: 20050306, end: 20050311
  2. FAMOTIDINE [Suspect]
     Indication: ABDOMINAL PAIN UPPER
     Dosage: 10 MG 1X PER 1 DAY ORAL
     Route: 048
     Dates: start: 20050306, end: 20050311
  3. FLOMOX (CEFCAPENE PIVOXIL HYDROCHLORIDE) [Concomitant]
     Indication: PNEUMONIA
     Dosage: 300 MG 1X PER 1 DAY ORAL
     Route: 048
     Dates: start: 20050306, end: 20050311
  4. TEPRENONE (TEPRENONE,) [Concomitant]
     Indication: ABDOMINAL PAIN UPPER
     Dosage: 150 MG 1X PER 1 DAY ORAL
     Route: 048
     Dates: start: 20050306, end: 20050311

REACTIONS (7)
  - ALANINE AMINOTRANSFERASE INCREASED [None]
  - ASPARTATE AMINOTRANSFERASE INCREASED [None]
  - BLOOD LACTATE DEHYDROGENASE INCREASED [None]
  - GAMMA-GLUTAMYLTRANSFERASE INCREASED [None]
  - HEPATIC ENZYME INCREASED [None]
  - LIVER DISORDER [None]
  - RESPIRATORY DISTRESS [None]
